FAERS Safety Report 12948954 (Version 1)
Quarter: 2016Q4

REPORT INFORMATION
  Report Type: Report from Study
  Country: JP (occurrence: JP)
  Receive Date: 20161117
  Receipt Date: 20161117
  Transmission Date: 20170207
  Serious: Yes (Other)
  Sender: FDA-Public Use
  Company Number: JP-SHIRE-JP201617078

PATIENT
  Age: 86 Year
  Sex: Female

DRUGS (5)
  1. 422 (ANAGRELIDE) [Suspect]
     Active Substance: ANAGRELIDE
     Indication: ESSENTIAL THROMBOCYTHAEMIA
     Dosage: 1 MG/DAY
     Route: 048
     Dates: start: 20151023, end: 20151126
  2. HYDREA [Concomitant]
     Active Substance: HYDROXYUREA
     Indication: ESSENTIAL THROMBOCYTHAEMIA
     Dosage: UNK, UNKNOWN
     Route: 065
     Dates: start: 20160205, end: 20160208
  3. 422 (ANAGRELIDE) [Suspect]
     Active Substance: ANAGRELIDE
     Dosage: 1.5 MG/DAY
     Route: 048
     Dates: start: 20160304, end: 20160712
  4. 422 (ANAGRELIDE) [Suspect]
     Active Substance: ANAGRELIDE
     Dosage: 1.5 MG/DAY
     Route: 048
     Dates: start: 20151127, end: 20151210
  5. 422 (ANAGRELIDE) [Suspect]
     Active Substance: ANAGRELIDE
     Dosage: 2 MG/DAY
     Route: 048
     Dates: start: 20151211, end: 20160303

REACTIONS (2)
  - Platelet count decreased [Recovered/Resolved]
  - Myelofibrosis [Not Recovered/Not Resolved]

NARRATIVE: CASE EVENT DATE: 20160712
